FAERS Safety Report 4899850-7 (Version None)
Quarter: 2006Q1

REPORT INFORMATION
  Report Type: 
  Country: None (occurrence: None)
  Receive Date: 20060113
  Receipt Date: 20051031
  Transmission Date: 20060701
  Serious: No
  Sender: FDA-Public Use
  Company Number: 2005SP002894

PATIENT
  Age: 49 Year
  Sex: Female

DRUGS (5)
  1. LUNESTA [Suspect]
     Indication: INSOMNIA
     Dosage: 3 MG;HS;ORAL
     Route: 048
     Dates: start: 20050509, end: 20050101
  2. ULTRAM [Concomitant]
  3. FLEXERIL [Concomitant]
  4. ACETAMINOPHEN W/ PROPOXYPHENE HCL [Concomitant]
  5. BONTRIL [Concomitant]

REACTIONS (3)
  - DISORIENTATION [None]
  - JOINT SWELLING [None]
  - TINNITUS [None]
